FAERS Safety Report 19086161 (Version 1)
Quarter: 2021Q2

REPORT INFORMATION
  Report Type: Spontaneous
  Country: TR (occurrence: TR)
  Receive Date: 20210402
  Receipt Date: 20210402
  Transmission Date: 20210717
  Serious: Yes (Hospitalization)
  Sender: FDA-Public Use
  Company Number: TR-PFIZER INC-2021316061

PATIENT
  Age: 70 Year
  Sex: Female

DRUGS (8)
  1. ATOR [Concomitant]
     Active Substance: ATORVASTATIN CALCIUM
  2. MONODUR [Concomitant]
     Active Substance: ISOSORBIDE MONONITRATE
  3. PLAVIX [Concomitant]
     Active Substance: CLOPIDOGREL BISULFATE
  4. ALDACTAZIDE [Concomitant]
     Active Substance: HYDROCHLOROTHIAZIDE\SPIRONOLACTONE
  5. BELOC ZOK [Concomitant]
     Active Substance: METOPROLOL SUCCINATE
  6. CORASPIN [Concomitant]
     Active Substance: ASPIRIN
  7. BOSUTINIB [Suspect]
     Active Substance: BOSUTINIB
     Dosage: UNK
  8. MONOKET [Concomitant]
     Active Substance: ISOSORBIDE MONONITRATE

REACTIONS (2)
  - White blood cell count increased [Unknown]
  - Diarrhoea [Unknown]
